FAERS Safety Report 8380489-6 (Version None)
Quarter: 2012Q2

REPORT INFORMATION
  Report Type: 
  Country: None (occurrence: None)
  Receive Date: 20120523
  Receipt Date: 20120517
  Transmission Date: 20120825
  Serious: Yes (Other)
  Sender: FDA-Public Use
  Company Number: JP-GLAXOSMITHKLINE-B0800920A

PATIENT
  Age: 64 Year
  Sex: Male

DRUGS (1)
  1. ZOVIRAX [Suspect]
     Indication: ORAL HERPES
     Dosage: 1000MG PER DAY
     Route: 048
     Dates: start: 20120502, end: 20120506

REACTIONS (2)
  - GASTROINTESTINAL HAEMORRHAGE [None]
  - ANAEMIA [None]
